FAERS Safety Report 24464477 (Version 1)
Quarter: 2024Q4

REPORT INFORMATION
  Report Type: Report from Study
  Country: US (occurrence: US)
  Receive Date: 20241018
  Receipt Date: 20241018
  Transmission Date: 20250115
  Serious: No
  Sender: ROCHE
  Company Number: US-ROCHE-3489560

PATIENT
  Age: 40 Year
  Sex: Female
  Weight: 73.48 kg

DRUGS (10)
  1. XOLAIR [Suspect]
     Active Substance: OMALIZUMAB
     Indication: Idiopathic urticaria
     Dosage: ANTICIPATED DATE OF TREATMENT: 10/JAN/2024
     Route: 058
  2. XOLAIR [Suspect]
     Active Substance: OMALIZUMAB
  3. ATORVASTATIN [Concomitant]
     Active Substance: ATORVASTATIN
  4. CROMOLYN [Concomitant]
     Active Substance: CROMOLYN
  5. FAMOTIDINE [Concomitant]
     Active Substance: FAMOTIDINE
  6. FLONASE [Concomitant]
     Active Substance: FLUTICASONE PROPIONATE
  7. IPRATROPIUM BROMIDE [Concomitant]
     Active Substance: IPRATROPIUM BROMIDE
  8. METFORMIN [Concomitant]
     Active Substance: METFORMIN HYDROCHLORIDE
  9. PREDNISONE [Concomitant]
     Active Substance: PREDNISONE
  10. PEPCID [Concomitant]
     Active Substance: FAMOTIDINE

REACTIONS (12)
  - Abdominal pain [Unknown]
  - Adverse food reaction [Unknown]
  - Adverse drug reaction [Unknown]
  - Headache [Unknown]
  - Paranasal sinus discomfort [Unknown]
  - Eye pruritus [Unknown]
  - Ear discomfort [Unknown]
  - Nasal obstruction [Unknown]
  - Oropharyngeal pain [Unknown]
  - Soft tissue swelling [Unknown]
  - Pruritus [Unknown]
  - Rash [Unknown]
